FAERS Safety Report 8186922-7 (Version None)
Quarter: 2012Q1

REPORT INFORMATION
  Report Type: 
  Country: None (occurrence: None)
  Receive Date: 20120306
  Receipt Date: 20120227
  Transmission Date: 20120608
  Serious: Yes (Other)
  Sender: FDA-Public Use
  Company Number: US-US-EMD SERONO, INC.-7008519

PATIENT
  Sex: Female
  Weight: 48 kg

DRUGS (3)
  1. KLONOPIN [Concomitant]
     Indication: TREMOR
  2. NUVIGIL [Concomitant]
  3. REBIF [Suspect]
     Indication: MULTIPLE SCLEROSIS
     Route: 058
     Dates: start: 20100311

REACTIONS (10)
  - CHEST DISCOMFORT [None]
  - CHILLS [None]
  - BLOOD IRON DECREASED [None]
  - ANTINUCLEAR ANTIBODY INCREASED [None]
  - GASTROOESOPHAGEAL REFLUX DISEASE [None]
  - VITAMIN B6 DECREASED [None]
  - INJECTION SITE PAIN [None]
  - HYPERHIDROSIS [None]
  - VITAMIN B12 DECREASED [None]
  - FEELING HOT [None]
